FAERS Safety Report 5125865-X (Version None)
Quarter: 2006Q4

REPORT INFORMATION
  Report Type: 
  Country: None (occurrence: None)
  Receive Date: 20061012
  Receipt Date: 20060811
  Transmission Date: 20070319
  Serious: Yes (Other)
  Sender: FDA-Public Use
  Company Number: US-GLAXOSMITHKLINE-A0616328A

PATIENT
  Age: 7 Year
  Sex: Male

DRUGS (2)
  1. FLOVENT [Suspect]
     Indication: ASTHMA
     Dosage: 2PUFF TWICE PER DAY
     Route: 055
     Dates: start: 20050101, end: 20060701
  2. ALBUTEROL [Concomitant]

REACTIONS (2)
  - DENTAL CARIES [None]
  - ENAMEL ANOMALY [None]
